FAERS Safety Report 23150146 (Version 1)
Quarter: 2023Q4

REPORT INFORMATION
  Report Type: Report from Study
  Country: AU (occurrence: AU)
  Receive Date: 20231106
  Receipt Date: 20231106
  Transmission Date: 20240110
  Serious: Yes (Hospitalization)
  Sender: FDA-Public Use
  Company Number: AU-NOVOPROD-1133458

PATIENT
  Sex: Female

DRUGS (1)
  1. SAXENDA [Suspect]
     Active Substance: LIRAGLUTIDE
     Indication: Weight control
     Dosage: UNK

REACTIONS (2)
  - Blood potassium decreased [Unknown]
  - Renal impairment [Unknown]
